FAERS Safety Report 9038294 (Version 1)
Quarter: 2013Q1

REPORT INFORMATION
  Report Type: Report from Study
  Country: US (occurrence: US)
  Receive Date: 20130130
  Receipt Date: 20130130
  Transmission Date: 20140127
  Serious: No
  Sender: FDA-Public Use
  Company Number: US-ABBOTT-12P-163-0951394-00

PATIENT
  Age: 32 Year
  Sex: Female

DRUGS (3)
  1. HUMIRA 40 MG/0.8 ML PEN [Suspect]
     Indication: CROHN^S DISEASE
     Route: 058
     Dates: start: 20120523
  2. HUMIRA 40 MG/0.8 ML PEN [Suspect]
     Route: 058
     Dates: start: 20120606
  3. HUMIRA 40 MG/0.8 ML PEN [Suspect]
     Dosage: GAVE ANOTHER 80 MG DOSE, IN ERROR
     Dates: start: 20120620

REACTIONS (1)
  - Incorrect dose administered [Recovered/Resolved]
